FAERS Safety Report 18052422 (Version 1)
Quarter: 2020Q3

REPORT INFORMATION
  Report Type: Spontaneous
  Country: US (occurrence: US)
  Receive Date: 20200722
  Receipt Date: 20200722
  Transmission Date: 20201103
  Serious: No
  Sender: FDA-Public Use
  Company Number: NVSC2020US199186

PATIENT
  Sex: Female
  Weight: 53.52 kg

DRUGS (5)
  1. PREMARIN [Suspect]
     Active Substance: ESTROGENS, CONJUGATED
     Indication: BREAST CANCER
     Route: 065
  2. EXEMESTANE. [Suspect]
     Active Substance: EXEMESTANE
     Indication: BREAST CANCER
     Dosage: UNK
     Route: 065
  3. AFINITOR [Suspect]
     Active Substance: EVEROLIMUS
     Indication: BREAST CANCER
     Dosage: UNK
     Route: 065
  4. MEKTOVI [Suspect]
     Active Substance: BINIMETINIB
     Indication: BREAST CANCER
     Dosage: 30 MG, BID
     Route: 048
  5. BRAFTOVI [Suspect]
     Active Substance: ENCORAFENIB
     Indication: BREAST CANCER
     Dosage: 75 MG, QD (4 CAPSULES)
     Route: 048

REACTIONS (2)
  - Hot flush [Not Recovered/Not Resolved]
  - Blood glucose increased [Unknown]
